FAERS Safety Report 24582655 (Version 4)
Quarter: 2024Q4

REPORT INFORMATION
  Report Type: Spontaneous
  Country: US (occurrence: US)
  Receive Date: 20241106
  Receipt Date: 20241224
  Transmission Date: 20250115
  Serious: No
  Sender: NOVARTIS
  Company Number: US-002147023-NVSC2024US214449

PATIENT
  Sex: Male
  Weight: 89 kg

DRUGS (1)
  1. SCEMBLIX [Suspect]
     Active Substance: ASCIMINIB HYDROCHLORIDE
     Indication: Chronic myeloid leukaemia
     Dosage: 20 MG, QD
     Route: 048

REACTIONS (7)
  - Drug intolerance [Unknown]
  - Tooth infection [Recovering/Resolving]
  - Lymph gland infection [Recovering/Resolving]
  - Gingival disorder [Recovering/Resolving]
  - Infection [Recovering/Resolving]
  - Product tampering [Unknown]
  - Product dispensing error [Unknown]
